FAERS Safety Report 18726929 (Version 1)
Quarter: 2021Q1

REPORT INFORMATION
  Report Type: Spontaneous
  Country: US (occurrence: US)
  Receive Date: 20210111
  Receipt Date: 20210111
  Transmission Date: 20210419
  Serious: Yes (Death)
  Sender: FDA-Public Use
  Company Number: US-BAUSCH-BL-2020-039636

PATIENT
  Age: 46 Year
  Sex: Female

DRUGS (12)
  1. INSULIN GLARGINE (ER) [Suspect]
     Active Substance: INSULIN GLARGINE
     Indication: PRODUCT USED FOR UNKNOWN INDICATION
     Dosage: INGESTION. EXTENDED RELEASE
     Route: 048
  2. INSULIN GLARGINE (ER) [Suspect]
     Active Substance: INSULIN GLARGINE
     Route: 051
  3. METFORMIN [Suspect]
     Active Substance: METFORMIN HYDROCHLORIDE
     Route: 051
  4. DIAZEPAM. [Suspect]
     Active Substance: DIAZEPAM
     Route: 051
  5. METFORMIN [Suspect]
     Active Substance: METFORMIN HYDROCHLORIDE
     Indication: PRODUCT USED FOR UNKNOWN INDICATION
     Dosage: INGESTION
     Route: 048
  6. INSULIN LISPRO [Suspect]
     Active Substance: INSULIN LISPRO
     Route: 051
  7. DIAZEPAM. [Suspect]
     Active Substance: DIAZEPAM
     Indication: PRODUCT USED FOR UNKNOWN INDICATION
     Dosage: INGESTION
     Route: 048
  8. INSULIN LISPRO [Suspect]
     Active Substance: INSULIN LISPRO
     Indication: PRODUCT USED FOR UNKNOWN INDICATION
     Dosage: INGESTION
     Route: 048
  9. INSULIN LISPRO [Suspect]
     Active Substance: INSULIN LISPRO
     Dosage: ASPIRATION (WITH INGESTION)
     Route: 050
  10. METFORMIN [Suspect]
     Active Substance: METFORMIN HYDROCHLORIDE
     Indication: PRODUCT USED FOR UNKNOWN INDICATION
     Dosage: ASPIRATION (WITH INGESTION)
     Route: 050
  11. DIAZEPAM. [Suspect]
     Active Substance: DIAZEPAM
     Indication: PRODUCT USED FOR UNKNOWN INDICATION
     Dosage: ASPIRATION (WITH INGESTION)
     Route: 050
  12. INSULIN GLARGINE (ER) [Suspect]
     Active Substance: INSULIN GLARGINE
     Dosage: ASPIRATION (WITH INGESTION)
     Route: 050

REACTIONS (1)
  - Completed suicide [Fatal]
